FAERS Safety Report 9447948 (Version 1)
Quarter: 2013Q3

REPORT INFORMATION
  Report Type: Spontaneous
  Country: US (occurrence: None)
  Receive Date: 20130807
  Receipt Date: 20130807
  Transmission Date: 20140515
  Serious: Yes (Life-Threatening, Disabling)
  Sender: FDA-Public Use
  Company Number: None

PATIENT
  Age: 45 Year
  Sex: Female
  Weight: 102.06 kg

DRUGS (4)
  1. LYRICA [Suspect]
     Indication: NEUROPATHY PERIPHERAL
     Dosage: 2 PILLS THREE TIMES DAILY TAKEN BY MOUTH
     Route: 048
  2. LYRICA [Suspect]
     Indication: BURNING SENSATION
     Dosage: 2 PILLS THREE TIMES DAILY TAKEN BY MOUTH
     Route: 048
  3. LYRICA [Suspect]
     Indication: PARAESTHESIA
     Dosage: 2 PILLS THREE TIMES DAILY TAKEN BY MOUTH
     Route: 048
  4. LYRICA [Suspect]
     Indication: PAIN
     Dosage: 2 PILLS THREE TIMES DAILY TAKEN BY MOUTH
     Route: 048

REACTIONS (11)
  - Personality change [None]
  - Personality disorder [None]
  - Depression [None]
  - Suicidal ideation [None]
  - Dyslexia [None]
  - Insomnia [None]
  - Nervousness [None]
  - Tic [None]
  - Amnesia [None]
  - Amnesia [None]
  - Impaired work ability [None]
